FAERS Safety Report 4811081-5 (Version None)
Quarter: 2005Q4

REPORT INFORMATION
  Report Type: 
  Country: None (occurrence: None)
  Receive Date: 20051025
  Receipt Date: 20051010
  Transmission Date: 20060501
  Serious: Yes (Life-Threatening, Hospitalization, Other)
  Sender: FDA-Public Use
  Company Number: 2005-02099

PATIENT
  Age: 54 Year
  Sex: Female

DRUGS (3)
  1. VELCADE [Suspect]
     Indication: WALDENSTROM'S MACROGLOBULINAEMIA
     Dosage: SEE IMAGE
     Route: 042
     Dates: start: 20040312
  2. VELCADE [Suspect]
     Indication: WALDENSTROM'S MACROGLOBULINAEMIA
     Dosage: SEE IMAGE
     Route: 042
     Dates: start: 20050405
  3. ZOMETA [Concomitant]

REACTIONS (11)
  - ASTHENIA [None]
  - CENTRAL LINE INFECTION [None]
  - EYE PAIN [None]
  - NECK PAIN [None]
  - PAIN [None]
  - PAIN IN EXTREMITY [None]
  - PAIN IN JAW [None]
  - PYREXIA [None]
  - SHOULDER PAIN [None]
  - THERAPY NON-RESPONDER [None]
  - VASCULITIS [None]
